FAERS Safety Report 10745370 (Version 2)
Quarter: 2015Q2

REPORT INFORMATION
  Report Type: Spontaneous
  Country: US (occurrence: None)
  Receive Date: 20150120
  Receipt Date: 20150420
  Transmission Date: 20150821
  Serious: No
  Sender: FDA-Public Use
  Company Number: AEGR000937

PATIENT
  Age: 68 Year
  Sex: Female
  Weight: 57.1 kg

DRUGS (13)
  1. LEXAPRO [Concomitant]
     Active Substance: ESCITALOPRAM OXALATE
  2. RESTASIS (CICLOSPORIN) [Concomitant]
  3. VITAMIN E (TOCOPHERYL ACETATE) [Concomitant]
  4. JUXTAPID [Suspect]
     Active Substance: LOMITAPIDE MESYLATE
     Indication: TYPE IIA HYPERLIPIDAEMIA
     Route: 048
     Dates: start: 20141118, end: 201412
  5. FIORICET (BUTALBITAL, CAFFEINE, PARACETAMOL) [Concomitant]
  6. OMEPRAZOLE. [Concomitant]
     Active Substance: OMEPRAZOLE
  7. LOSARTAN (LOSARTAN POTASSIUM) [Concomitant]
  8. MULTIVITAMIN (VITAMINS NOS) [Concomitant]
     Active Substance: VITAMINS
  9. OMEGA 3 (FISH OIL) [Concomitant]
     Active Substance: OMEGA-3 FATTY ACIDS
  10. LOSARTAN/HYDROCHLOROTIAZIDE (HYDROCHLOROTHIAZIDE, LOSARTAN POTASSIUM) [Concomitant]
  11. ASPIRIN (ACETYLSALICYLIC ACID) [Concomitant]
     Active Substance: ASPIRIN
  12. METADATE CD (METHYLPHENIDATE HYDROCHLORIDE) [Concomitant]
  13. PRILOSEC (OMEPRAZOLE) [Concomitant]
     Active Substance: OMEPRAZOLE MAGNESIUM

REACTIONS (4)
  - Dyspepsia [None]
  - Diarrhoea [None]
  - Weight decreased [None]
  - Inappropriate schedule of drug administration [None]

NARRATIVE: CASE EVENT DATE: 201411
